FAERS Safety Report 4634582-1 (Version None)
Quarter: 2005Q2

REPORT INFORMATION
  Report Type: 
  Country: None (occurrence: None)
  Receive Date: 20050411
  Receipt Date: 20050325
  Transmission Date: 20051028
  Serious: Yes (Hospitalization)
  Sender: FDA-Public Use
  Company Number: 8009691

PATIENT
  Age: 29 Year
  Sex: Male
  Weight: 42 kg

DRUGS (4)
  1. KEPPRA [Suspect]
     Indication: EPILEPSY
     Dosage: 1000 MG /D PO
     Route: 048
     Dates: end: 20050218
  2. RIVOTRIL [Concomitant]
  3. MOVICOL [Concomitant]
  4. CLAMOXYL [Concomitant]

REACTIONS (7)
  - CONFUSIONAL STATE [None]
  - DISINHIBITION [None]
  - ESCHAR [None]
  - EXTRAPYRAMIDAL DISORDER [None]
  - HALLUCINATION, VISUAL [None]
  - HEART RATE INCREASED [None]
  - LOGORRHOEA [None]
